FAERS Safety Report 9694021 (Version 1)
Quarter: 2013Q4

REPORT INFORMATION
  Report Type: Spontaneous
  Country: PK (occurrence: PK)
  Receive Date: 20131118
  Receipt Date: 20131118
  Transmission Date: 20140711
  Serious: Yes (Other)
  Sender: FDA-Public Use
  Company Number: PK-ABBVIE-13P-124-1157810-00

PATIENT
  Age: 2 Year
  Sex: Female

DRUGS (3)
  1. EPILIM [Suspect]
     Indication: EPILEPSY
     Route: 048
  2. EPILIM [Suspect]
     Route: 048
     Dates: start: 20130418
  3. EPILIM [Suspect]
     Route: 048
     Dates: start: 201305

REACTIONS (1)
  - Blindness transient [Recovered/Resolved]
